FAERS Safety Report 10210910 (Version 2)
Quarter: 2014Q3

REPORT INFORMATION
  Report Type: Spontaneous
  Country: US (occurrence: US)
  Receive Date: 20140602
  Receipt Date: 20140703
  Transmission Date: 20150326
  Serious: No
  Sender: FDA-Public Use
  Company Number: US-PFIZER INC-2014150710

PATIENT
  Age: 71 Year
  Sex: Male

DRUGS (8)
  1. PERCOCET [Concomitant]
     Active Substance: ACETAMINOPHEN\OXYCODONE HYDROCHLORIDE
     Dosage: UNK
  2. BENTYL [Concomitant]
     Active Substance: DICYCLOMINE HYDROCHLORIDE
     Dosage: UNK
  3. ZIRGAN [Concomitant]
     Active Substance: GANCICLOVIR
     Dosage: UNK
  4. BACTRIM-DS [Concomitant]
     Dosage: UNK
  5. LOCOID [Concomitant]
     Active Substance: HYDROCORTISONE BUTYRATE
     Dosage: UNK
  6. LYRICA [Suspect]
     Active Substance: PREGABALIN
     Indication: COMPLEX REGIONAL PAIN SYNDROME
     Dosage: 100 MG, EVERY 8 HOURS
     Route: 048
  7. METFORMIN [Concomitant]
     Active Substance: METFORMIN HYDROCHLORIDE
     Dosage: UNK
  8. SEROQUEL [Concomitant]
     Active Substance: QUETIAPINE FUMARATE
     Dosage: UNK

REACTIONS (7)
  - Gastroenteritis viral [Unknown]
  - Pain [Recovered/Resolved]
  - Viral infection [Unknown]
  - Discomfort [Recovered/Resolved]
  - Off label use [Unknown]
  - Muscle twitching [Unknown]
  - Gastrointestinal disorder [Unknown]
